FAERS Safety Report 5483083-X (Version None)
Quarter: 2007Q4

REPORT INFORMATION
  Report Type: 
  Country: None (occurrence: None)
  Receive Date: 20071009
  Receipt Date: 20070927
  Transmission Date: 20080405
  Serious: Yes (Hospitalization)
  Sender: FDA-Public Use
  Company Number: 237933K07USA

PATIENT
  Age: 42 Year
  Sex: Female

DRUGS (2)
  1. REBIF [Suspect]
     Indication: MULTIPLE SCLEROSIS
     Dosage: 44 MCG, 3 IN 1 WEEKS, SUBCUTANEOUS, 22 MCG
     Route: 058
     Dates: start: 20060828, end: 20070801
  2. REBIF [Suspect]
     Indication: MULTIPLE SCLEROSIS
     Dosage: 44 MCG, 3 IN 1 WEEKS, SUBCUTANEOUS, 22 MCG
     Route: 058
     Dates: start: 20070801

REACTIONS (7)
  - ASTHENIA [None]
  - DEHYDRATION [None]
  - MYALGIA [None]
  - NAUSEA [None]
  - STRESS [None]
  - URINARY TRACT INFECTION [None]
  - VOMITING [None]
